FAERS Safety Report 8394946-X (Version None)
Quarter: 2012Q2

REPORT INFORMATION
  Report Type: 
  Country: None (occurrence: None)
  Receive Date: 20120530
  Receipt Date: 20111021
  Transmission Date: 20120825
  Serious: No
  Sender: FDA-Public Use
  Company Number: US-GLAXOSMITHKLINE-A0950502A

PATIENT
  Age: 57 Year
  Sex: Female

DRUGS (2)
  1. LETAIRIS [Concomitant]
     Dosage: 10MGD PER DAY
     Route: 048
  2. FLOLAN [Suspect]
     Indication: PULMONARY HYPERTENSION
     Dosage: 35.15NGKM UNKNOWN
     Route: 042
     Dates: start: 20060915

REACTIONS (1)
  - PAIN IN EXTREMITY [None]
